FAERS Safety Report 4537483-2 (Version None)
Quarter: 2004Q4

REPORT INFORMATION
  Report Type: 
  Country: None (occurrence: None)
  Receive Date: 20041223
  Receipt Date: 20041209
  Transmission Date: 20050328
  Serious: Yes (Other)
  Sender: FDA-Public Use
  Company Number: BR-MERCK-0412BRA00075

PATIENT
  Age: 38 Year
  Sex: Female

DRUGS (5)
  1. VIOXX [Suspect]
     Route: 048
  2. VITAMINS (UNSPECIFIED) [Concomitant]
     Route: 065
  3. VITAMINS (UNSPECIFIED) [Concomitant]
     Route: 065
  4. FLUOXETINE [Concomitant]
     Route: 065
  5. SUXIBUZONE [Concomitant]
     Route: 065

REACTIONS (3)
  - BLINDNESS [None]
  - DEPRESSION [None]
  - STRESS SYMPTOMS [None]
